FAERS Safety Report 16538930 (Version 2)
Quarter: 2019Q3

REPORT INFORMATION
  Report Type: Spontaneous
  Country: DE (occurrence: DE)
  Receive Date: 20190708
  Receipt Date: 20190711
  Transmission Date: 20191004
  Serious: Yes (Other)
  Sender: FDA-Public Use
  Company Number: DE-AMGEN-DEUSP2019106217

PATIENT
  Age: 90 Year
  Sex: Female

DRUGS (1)
  1. PROLIA [Suspect]
     Active Substance: DENOSUMAB
     Indication: PRODUCT USED FOR UNKNOWN INDICATION
     Dosage: 60 MILLIGRAM, Q6MO
     Route: 065
     Dates: start: 201807

REACTIONS (4)
  - Dysuria [Not Recovered/Not Resolved]
  - Nasal congestion [Not Recovered/Not Resolved]
  - Lip swelling [Not Recovered/Not Resolved]
  - Respiratory distress [Not Recovered/Not Resolved]

NARRATIVE: CASE EVENT DATE: 201812
